FAERS Safety Report 5743923-3 (Version None)
Quarter: 2008Q2

REPORT INFORMATION
  Report Type: 
  Country: None (occurrence: None)
  Receive Date: 20080516
  Receipt Date: 20080509
  Transmission Date: 20081010
  Serious: Yes (Disabling)
  Sender: FDA-Public Use
  Company Number: OSCN-NO-0603S-0069

PATIENT
  Age: 51 Year
  Sex: Female

DRUGS (1)
  1. OMNISCAN [Suspect]
     Indication: ISCHAEMIA
     Dosage: 35 ML, SINGLE DOSE, I.V.
     Route: 042
     Dates: start: 20051118, end: 20051118

REACTIONS (9)
  - DIZZINESS [None]
  - EYE PAIN [None]
  - EYELID PTOSIS [None]
  - HAEMOGLOBIN DECREASED [None]
  - HEADACHE [None]
  - MENTAL DISORDER [None]
  - PARAESTHESIA [None]
  - SERUM FERRITIN DECREASED [None]
  - VISUAL DISTURBANCE [None]
